FAERS Safety Report 11191394 (Version 1)
Quarter: 2015Q2

REPORT INFORMATION
  Report Type: Spontaneous
  Country: IT (occurrence: IT)
  Receive Date: 20150616
  Receipt Date: 20150616
  Transmission Date: 20150821
  Serious: Yes (Hospitalization)
  Sender: FDA-Public Use
  Company Number: IT-HOSPIRA-2613450

PATIENT
  Age: 61 Year
  Sex: Male

DRUGS (2)
  1. CARBOPLATIN. [Concomitant]
     Active Substance: CARBOPLATIN
     Indication: LUNG SQUAMOUS CELL CARCINOMA STAGE III
  2. ANZATAX                            /01116001/ [Suspect]
     Active Substance: PACLITAXEL
     Indication: LUNG SQUAMOUS CELL CARCINOMA STAGE III
     Dosage: ONCE
     Route: 042
     Dates: start: 20060701, end: 20060701

REACTIONS (4)
  - Dyspnoea [Recovered/Resolved]
  - Cyanosis [Recovered/Resolved]
  - Bronchospasm [Recovered/Resolved]
  - Chest pain [Recovered/Resolved]

NARRATIVE: CASE EVENT DATE: 20060701
